FAERS Safety Report 19698556 (Version 1)
Quarter: 2021Q3

REPORT INFORMATION
  Report Type: Spontaneous
  Country: ES (occurrence: ES)
  Receive Date: 20210813
  Receipt Date: 20210813
  Transmission Date: 20211014
  Serious: Yes (Death, Hospitalization, Other)
  Sender: FDA-Public Use
  Company Number: ES-MYLANLABS-2021M1049570

PATIENT
  Age: 26 Year
  Sex: Male
  Weight: 90 kg

DRUGS (15)
  1. PREDNISONA [Suspect]
     Active Substance: PREDNISONE
     Indication: PRODUCT USED FOR UNKNOWN INDICATION
     Dosage: 30 MILLIGRAM, QD
     Route: 048
     Dates: start: 20210130
  2. ENANTYUM [Suspect]
     Active Substance: DEXKETOPROFEN TROMETAMOL
     Indication: PRODUCT USED FOR UNKNOWN INDICATION
     Dosage: UNK
     Dates: start: 20210201, end: 20210201
  3. ATROVENT [Concomitant]
     Active Substance: IPRATROPIUM BROMIDE
     Dosage: UNK
     Dates: start: 20210130, end: 20210130
  4. PARACETAMOL [Suspect]
     Active Substance: ACETAMINOPHEN
     Dosage: UNK
     Dates: start: 20200201, end: 20200201
  5. AUGMENTINE                         /00756801/ [Suspect]
     Active Substance: AMOXICILLIN\CLAVULANATE POTASSIUM
     Indication: PRODUCT USED FOR UNKNOWN INDICATION
     Dosage: 1 DOSAGE FORM, Q8H
     Route: 048
     Dates: start: 20210201
  6. TOCILIZUMAB. [Suspect]
     Active Substance: TOCILIZUMAB
     Indication: COVID-19 PNEUMONIA
     Dosage: UNK
     Dates: start: 202011, end: 202011
  7. SYMBICORT [Concomitant]
     Active Substance: BUDESONIDE\FORMOTEROL FUMARATE DIHYDRATE
     Dosage: UNK
     Route: 055
     Dates: start: 20201103
  8. NOLOTIL                            /00473101/ [Suspect]
     Active Substance: METAMIZOLE\PROPOXYPHENE
     Indication: PRODUCT USED FOR UNKNOWN INDICATION
     Dosage: UNK
     Dates: start: 20210201, end: 20210201
  9. PFIZER?BIONTECH COVID?19 VACCINE [Suspect]
     Active Substance: TOZINAMERAN
     Indication: COVID-19 IMMUNISATION
     Dosage: 1 DOSAGE FORM, TOTAL
     Route: 030
     Dates: start: 20210114, end: 20210114
  10. PARACETAMOL [Suspect]
     Active Substance: ACETAMINOPHEN
     Indication: PRODUCT USED FOR UNKNOWN INDICATION
     Dosage: 1 GRAM, Q8H
     Route: 048
     Dates: start: 20210130
  11. NOLOTIL                            /00473101/ [Suspect]
     Active Substance: METAMIZOLE\PROPOXYPHENE
     Indication: PRODUCT USED FOR UNKNOWN INDICATION
     Dosage: 1 DOSAGE FORM, Q8H, INTERCALADO CON EL PARACETAMOL
     Route: 048
     Dates: start: 20210201
  12. PARACETAMOL [Suspect]
     Active Substance: ACETAMINOPHEN
     Indication: PRODUCT USED FOR UNKNOWN INDICATION
     Dosage: UNK
     Dates: start: 20210130, end: 20210130
  13. URBASON                            /00049601/ [Suspect]
     Active Substance: METHYLPREDNISOLONE
     Indication: PRODUCT USED FOR UNKNOWN INDICATION
     Dosage: UNK
     Dates: start: 20210130, end: 20210130
  14. VENTOLIN [Concomitant]
     Active Substance: ALBUTEROL SULFATE
     Dosage: UNK
     Route: 055
     Dates: start: 20210130
  15. SALBUTAMOL [Concomitant]
     Active Substance: ALBUTEROL
     Dosage: UNK
     Dates: start: 20210130, end: 20210130

REACTIONS (2)
  - Hepatitis acute [Fatal]
  - Haemophagocytic lymphohistiocytosis [Fatal]

NARRATIVE: CASE EVENT DATE: 20210204
